FAERS Safety Report 7713233-3 (Version None)
Quarter: 2011Q3

REPORT INFORMATION
  Report Type: 
  Country: None (occurrence: None)
  Receive Date: 20110826
  Receipt Date: 20110822
  Transmission Date: 20111222
  Serious: Yes (Hospitalization)
  Sender: FDA-Public Use
  Company Number: CA-PFIZER INC-2011194871

PATIENT
  Age: 47 Year
  Sex: Female

DRUGS (1)
  1. TRAZODONE HCL [Suspect]
     Dosage: AN ESTIMATED 15 G

REACTIONS (2)
  - OVERDOSE [None]
  - BEZOAR [None]
